FAERS Safety Report 10382460 (Version 2)
Quarter: 2014Q3

REPORT INFORMATION
  Report Type: Spontaneous
  Country: US (occurrence: None)
  Receive Date: 20140811
  Receipt Date: 20140813
  Transmission Date: 20150326
  Serious: Yes (Other)
  Sender: FDA-Public Use
  Company Number: NXG-14-011

PATIENT
  Sex: Male

DRUGS (1)
  1. GIAZO [Suspect]
     Active Substance: BALSALAZIDE DISODIUM
     Indication: COLITIS ULCERATIVE

REACTIONS (2)
  - Drug effect decreased [None]
  - Abdominal pain upper [None]
